FAERS Safety Report 9380380 (Version 1)
Quarter: 2013Q3

REPORT INFORMATION
  Report Type: Spontaneous
  Country: US (occurrence: US)
  Receive Date: 20130702
  Receipt Date: 20130702
  Transmission Date: 20140515
  Serious: Yes (Hospitalization)
  Sender: FDA-Public Use
  Company Number: US-ROXANE LABORATORIES, INC.-2013-RO-01084RO

PATIENT
  Age: 79 Year
  Sex: Female
  Weight: 119 kg

DRUGS (4)
  1. PREDNISONE [Suspect]
     Indication: POLYMYALGIA RHEUMATICA
     Dosage: 40 MG
     Route: 048
     Dates: start: 201305
  2. PREDNISONE [Suspect]
     Dosage: 30 MG
     Route: 048
  3. PREDNISONE [Suspect]
     Dosage: 20 MG
     Route: 048
  4. PREDNISONE [Suspect]
     Dosage: 10 MG
     Route: 048
     Dates: end: 20130512

REACTIONS (1)
  - Transient global amnesia [Recovered/Resolved]
